FAERS Safety Report 20746066 (Version 3)
Quarter: 2022Q3

REPORT INFORMATION
  Report Type: Spontaneous
  Country: US (occurrence: US)
  Receive Date: 20220425
  Receipt Date: 20220711
  Transmission Date: 20221026
  Serious: Yes (Hospitalization)
  Sender: FDA-Public Use
  Company Number: US-PFIZER INC-202200527805

PATIENT
  Age: 9 Month
  Sex: Male
  Weight: 6.4 kg

DRUGS (5)
  1. VFEND [Suspect]
     Active Substance: VORICONAZOLE
     Dosage: 1.35 ML, 2X/DAY
     Dates: start: 2022
  2. VFEND [Suspect]
     Active Substance: VORICONAZOLE
     Dosage: 1.2 ML, 2X/DAY (TAKE 1.2ML (48MG) BY MOUTH 2 TIMES DAILY)
     Route: 048
  3. VFEND [Suspect]
     Active Substance: VORICONAZOLE
     Dosage: 1.8 ML, 3X/DAY (TAKE 1.8 ML (72 MG) BY MOUTH 3 TIMES DAILY)
     Route: 048
  4. AMPICILLIN [Concomitant]
     Active Substance: AMPICILLIN
     Dosage: UNK
  5. CEFEPIME [Concomitant]
     Active Substance: CEFEPIME HYDROCHLORIDE
     Dosage: UNK

REACTIONS (3)
  - Pyrexia [Recovering/Resolving]
  - Otitis media [Recovering/Resolving]
  - Off label use [Unknown]

NARRATIVE: CASE EVENT DATE: 20220408
